FAERS Safety Report 12252960 (Version 1)
Quarter: 2016Q2

REPORT INFORMATION
  Report Type: Spontaneous
  Country: US (occurrence: US)
  Receive Date: 20160411
  Receipt Date: 20160411
  Transmission Date: 20160815
  Serious: No
  Sender: FDA-Public Use
  Company Number: US-ACTAVIS-2015-16416

PATIENT
  Age: 32 Year
  Sex: Female
  Weight: 36.3 kg

DRUGS (1)
  1. MICONAZOLE NITRATE (AMALLC) [Suspect]
     Active Substance: MICONAZOLE NITRATE
     Indication: VULVOVAGINAL MYCOTIC INFECTION
     Dosage: UNK UNK, SINGLE
     Route: 067
     Dates: start: 20150622, end: 20150622

REACTIONS (2)
  - Vulvovaginal burning sensation [Recovering/Resolving]
  - Vaginal erosion [Recovering/Resolving]

NARRATIVE: CASE EVENT DATE: 201506
